FAERS Safety Report 24938058 (Version 2)
Quarter: 2025Q2

REPORT INFORMATION
  Report Type: Spontaneous
  Country: AU (occurrence: AU)
  Receive Date: 20250206
  Receipt Date: 20250408
  Transmission Date: 20250716
  Serious: Yes (Hospitalization)
  Sender: SANDOZ
  Company Number: AU-MLMSERVICE-20250127-PI350843-00218-1

PATIENT
  Age: 73 Year
  Sex: Male

DRUGS (2)
  1. INFLIXIMAB [Suspect]
     Active Substance: INFLIXIMAB
     Indication: Crohn^s disease
     Route: 065
  2. METHOTREXATE [Suspect]
     Active Substance: METHOTREXATE
     Indication: Crohn^s disease
     Dosage: 10 MG, QW
     Route: 065

REACTIONS (4)
  - Epstein Barr virus positive mucocutaneous ulcer [Recovered/Resolved]
  - Iron deficiency anaemia [Recovered/Resolved]
  - Haemodynamic instability [Recovered/Resolved]
  - Gastrointestinal haemorrhage [Recovered/Resolved]
